FAERS Safety Report 24231092 (Version 1)
Quarter: 2024Q3

REPORT INFORMATION
  Report Type: Spontaneous
  Country: US (occurrence: US)
  Receive Date: 20240821
  Receipt Date: 20240821
  Transmission Date: 20241017
  Serious: No
  Sender: SANDOZ
  Company Number: US-SANDOZ-SDZ2024US073139

PATIENT

DRUGS (8)
  1. CLINDAMYCIN [Suspect]
     Active Substance: CLINDAMYCIN
     Indication: Hidradenitis
     Route: 065
  2. DOXYCYCLINE [Suspect]
     Active Substance: DOXYCYCLINE\DOXYCYCLINE HYCLATE
     Indication: Hidradenitis
     Dosage: 2X DAILY
     Route: 065
  3. HIBICLENS [Suspect]
     Active Substance: CHLORHEXIDINE GLUCONATE
     Indication: Hidradenitis
     Route: 065
  4. HIBICLENS [Suspect]
     Active Substance: CHLORHEXIDINE GLUCONATE
     Indication: Hidradenitis
     Route: 065
  5. ZINC [Suspect]
     Active Substance: ZINC
     Indication: Hidradenitis
     Route: 065
  6. ZINC [Suspect]
     Active Substance: ZINC
     Indication: Hidradenitis
     Route: 065
  7. PREDNISONE [Concomitant]
     Active Substance: PREDNISONE
     Indication: Hidradenitis
     Route: 065
  8. PREDNISONE [Concomitant]
     Active Substance: PREDNISONE
     Indication: Hidradenitis
     Route: 065

REACTIONS (1)
  - Dermal cyst [Unknown]
